FAERS Safety Report 23678567 (Version 1)
Quarter: 2024Q1

REPORT INFORMATION
  Report Type: Spontaneous
  Country: US (occurrence: US)
  Receive Date: 20240327
  Receipt Date: 20240327
  Transmission Date: 20240409
  Serious: No
  Sender: FDA-Public Use
  Company Number: US-SEBELA IRELAND LIMITED-2023SEB00022

PATIENT
  Sex: Female
  Weight: 86.168 kg

DRUGS (2)
  1. NAFTIN [Suspect]
     Active Substance: NAFTIFINE HYDROCHLORIDE
     Indication: Fungal infection
     Dosage: UNK, 1X/DAY
     Route: 061
     Dates: start: 2021
  2. NAFTIN [Suspect]
     Active Substance: NAFTIFINE HYDROCHLORIDE
     Dosage: UNK, EVERY OTHER DAY
     Route: 061
     Dates: start: 20230322, end: 202303

REACTIONS (8)
  - Drug hypersensitivity [Recovering/Resolving]
  - Wound [Recovering/Resolving]
  - Acne [Recovering/Resolving]
  - Rash macular [Recovering/Resolving]
  - Skin exfoliation [Unknown]
  - Erythema [Recovering/Resolving]
  - Pruritus [Recovering/Resolving]
  - Blister [Recovering/Resolving]

NARRATIVE: CASE EVENT DATE: 20210101
